FAERS Safety Report 4737867-3 (Version None)
Quarter: 2005Q3

REPORT INFORMATION
  Report Type: 
  Country: None (occurrence: None)
  Receive Date: 20050809
  Receipt Date: 20050804
  Transmission Date: 20060218
  Serious: Yes (Life-Threatening, Hospitalization)
  Sender: FDA-Public Use
  Company Number: PHBS2005FI11347

PATIENT
  Age: 52 Year
  Sex: Male

DRUGS (8)
  1. RENITEC COMP. [Concomitant]
     Dosage: 1 DF, QD
     Dates: start: 19880101
  2. AMARYL [Concomitant]
  3. PRIMASPAN [Concomitant]
     Dosage: 100 MG/D
  4. LAMISIL [Suspect]
     Indication: NAIL TINEA
     Dosage: 250 MG/D
     Route: 048
     Dates: start: 20050101, end: 20050510
  5. METFOREM [Concomitant]
     Dosage: 3000 MG/D
     Dates: start: 19950101
  6. PROTAPHANE MC [Concomitant]
     Dosage: 90 IU/D
  7. GEVILON [Concomitant]
     Dosage: 1200 MG/D
     Dates: start: 19880101
  8. SIMVASTATIN [Concomitant]
     Dosage: 20 MG/D

REACTIONS (4)
  - ABDOMINAL PAIN UPPER [None]
  - NAUSEA [None]
  - PANCREATITIS [None]
  - VOMITING [None]
